FAERS Safety Report 23350897 (Version 1)
Quarter: 2023Q4

REPORT INFORMATION
  Report Type: Spontaneous
  Country: US (occurrence: None)
  Receive Date: 20231228
  Receipt Date: 20231228
  Transmission Date: 20240110
  Serious: Yes (Death)
  Sender: FDA-Public Use
  Company Number: None

PATIENT
  Age: 76 Year
  Sex: Male

DRUGS (1)
  1. LENALIDOMIDE [Suspect]
     Active Substance: LENALIDOMIDE
     Indication: Follicular lymphoma
     Dosage: OTHER FREQUENCY : QD X 21;?
     Route: 048
     Dates: start: 20230918, end: 20231201

REACTIONS (5)
  - COVID-19 pneumonia [None]
  - Ischaemic cardiomyopathy [None]
  - Fall [None]
  - Asthenia [None]
  - Encephalopathy [None]

NARRATIVE: CASE EVENT DATE: 20231226
